FAERS Safety Report 24425931 (Version 4)
Quarter: 2024Q4

REPORT INFORMATION
  Report Type: Spontaneous
  Country: JP (occurrence: JP)
  Receive Date: 20241011
  Receipt Date: 20241231
  Transmission Date: 20250115
  Serious: Yes (Other)
  Sender: RANBAXY
  Company Number: JP-SUN PHARMACEUTICAL INDUSTRIES LTD-2024RR-472074

PATIENT
  Age: 62 Year
  Sex: Male

DRUGS (5)
  1. OXALIPLATIN [Suspect]
     Active Substance: OXALIPLATIN
     Indication: Chemotherapy
     Dosage: 100 MILLIGRAM/SQ. METER
     Route: 065
  2. TEGAFUR [Suspect]
     Active Substance: TEGAFUR
     Indication: Adenocarcinoma
     Route: 065
  3. NIVOLUMAB [Suspect]
     Active Substance: NIVOLUMAB
     Indication: Adenocarcinoma
     Dosage: 360 MILLIGRAM PER BODY
     Route: 065
  4. GIMERACIL [Suspect]
     Active Substance: GIMERACIL
     Indication: Adenocarcinoma
     Dosage: UNK
     Route: 065
  5. OTERACIL [Suspect]
     Active Substance: OTERACIL
     Indication: Adenocarcinoma
     Dosage: UNK
     Route: 065

REACTIONS (3)
  - Hepatic failure [Unknown]
  - Condition aggravated [Unknown]
  - Neutropenia [Unknown]
